FAERS Safety Report 9398223 (Version 1)
Quarter: 2013Q3

REPORT INFORMATION
  Report Type: Report from Study
  Country: CA (occurrence: CA)
  Receive Date: 20130712
  Receipt Date: 20130712
  Transmission Date: 20140515
  Serious: Yes (Other)
  Sender: FDA-Public Use
  Company Number: CA-JNJFOC-20130705443

PATIENT
  Age: 41 Year
  Sex: Female
  Weight: 77.8 kg

DRUGS (10)
  1. REMICADE [Suspect]
     Indication: CROHN^S DISEASE
     Route: 042
     Dates: start: 20130703
  2. REMICADE [Suspect]
     Indication: CROHN^S DISEASE
     Route: 042
     Dates: start: 20110503
  3. METHOTREXATE [Concomitant]
     Route: 065
  4. CESAMET [Concomitant]
     Route: 065
  5. LOMOTIL [Concomitant]
     Route: 065
  6. TYLENOL NO.3 [Concomitant]
     Route: 065
  7. ELAVIL [Concomitant]
     Route: 065
  8. TRAMADOL [Concomitant]
     Route: 065
  9. PERCOCET [Concomitant]
     Route: 065
  10. B12 [Concomitant]
     Route: 065

REACTIONS (4)
  - Rheumatoid arthritis [Unknown]
  - Injection site hypoaesthesia [Unknown]
  - Infusion related reaction [Unknown]
  - Injection site coldness [Unknown]
